FAERS Safety Report 23237341 (Version 1)
Quarter: 2023Q4

REPORT INFORMATION
  Report Type: Spontaneous
  Country: SG (occurrence: SG)
  Receive Date: 20231128
  Receipt Date: 20231128
  Transmission Date: 20240110
  Serious: Yes (Other)
  Sender: FDA-Public Use
  Company Number: SG-BAYER-2023A170455

PATIENT

DRUGS (1)
  1. FINERENONE [Suspect]
     Active Substance: FINERENONE
     Dosage: UNK

REACTIONS (1)
  - Acute kidney injury [None]
